FAERS Safety Report 4927751-4 (Version None)
Quarter: 2006Q1

REPORT INFORMATION
  Report Type: 
  Country: None (occurrence: None)
  Receive Date: 20060222
  Receipt Date: 20060210
  Transmission Date: 20060701
  Serious: Yes (Hospitalization)
  Sender: FDA-Public Use
  Company Number: 2006019936

PATIENT
  Age: 42 Year
  Sex: Male
  Weight: 72.5755 kg

DRUGS (1)
  1. UNISOM [Suspect]
     Indication: ACCIDENTAL OVERDOSE
     Dosage: MORE THAN 2 TABLETS ONCE, ORAL
     Route: 048
     Dates: start: 20060209, end: 20060209

REACTIONS (2)
  - FALL [None]
  - INCORRECT DOSE ADMINISTERED [None]
